FAERS Safety Report 4439884-X (Version None)
Quarter: 2004Q3

REPORT INFORMATION
  Report Type: 
  Country: None (occurrence: None)
  Receive Date: 20040902
  Receipt Date: 20040820
  Transmission Date: 20050211
  Serious: Yes (Hospitalization)
  Sender: FDA-Public Use
  Company Number: JP-MERCK-0408USA02016

PATIENT
  Age: 30 Year
  Sex: Female

DRUGS (12)
  1. ZITHROMAX [Concomitant]
     Route: 048
     Dates: start: 20040806
  2. LEXOTAN [Concomitant]
     Route: 048
  3. TEGRETOL [Concomitant]
     Route: 048
  4. CEFCAPENE PIVOXIL HYDROCHLORIDE [Concomitant]
     Route: 048
     Dates: start: 20040805
  5. VOLTAREN [Concomitant]
     Route: 065
     Dates: end: 20040801
  6. INDOCIN [Suspect]
     Indication: PAIN
     Route: 054
     Dates: start: 20040809
  7. CRAVIT [Concomitant]
     Route: 048
     Dates: start: 20040809
  8. LOXONIN [Concomitant]
     Route: 048
     Dates: end: 20040801
  9. GASMOTIN [Concomitant]
     Route: 048
  10. PANTOSIN [Concomitant]
     Route: 048
  11. PAXIL [Concomitant]
     Route: 048
  12. DOGMATYL [Concomitant]
     Route: 048

REACTIONS (3)
  - LYMPHOCYTE COUNT INCREASED [None]
  - LYMPHOCYTE MORPHOLOGY ABNORMAL [None]
  - WHITE BLOOD CELL COUNT INCREASED [None]
